FAERS Safety Report 8802193 (Version 7)
Quarter: 2013Q1

REPORT INFORMATION
  Report Type: Report from Study
  Country: GB (occurrence: GB)
  Receive Date: 20120921
  Receipt Date: 20130212
  Transmission Date: 20140127
  Serious: Yes (Death, Life-Threatening, Hospitalization)
  Sender: FDA-Public Use
  Company Number: PHHO2012GB013557

PATIENT
  Age: 48 Year
  Sex: Female

DRUGS (4)
  1. FTY [Suspect]
     Indication: MULTIPLE SCLEROSIS
     Dosage: 0.5 MG, QD
     Route: 048
     Dates: start: 20110225, end: 20120917
  2. ZOPICLONE [Concomitant]
     Dosage: 7.5 MG, UNK
     Dates: start: 2010
  3. CITALOPRAM [Concomitant]
     Dosage: 3.0 MG, QD
     Dates: start: 2010
  4. PREGABALIN [Concomitant]
     Dosage: 300 MG, QD
     Dates: start: 2011

REACTIONS (3)
  - Multi-organ failure [Fatal]
  - Pulmonary embolism [Not Recovered/Not Resolved]
  - Splenic rupture [Not Recovered/Not Resolved]
